FAERS Safety Report 7923176 (Version 2)
Quarter: 2013Q3

REPORT INFORMATION
  Report Type: Report from Study
  Country: US (occurrence: US)
  Receive Date: 20110429
  Receipt Date: 20130809
  Transmission Date: 20140515
  Serious: Yes (Death)
  Sender: FDA-Public Use
  Company Number: US-ASTRAZENECA-2010SE29781

PATIENT
  Age: 27490 Day
  Sex: Male

DRUGS (11)
  1. NEXIUM [Suspect]
     Route: 048
  2. NORVASC [Concomitant]
  3. METFORMIN [Concomitant]
  4. PREDNISONE [Concomitant]
  5. DIOVAN [Concomitant]
  6. TOPROL XL [Concomitant]
  7. METHOTREXATE [Concomitant]
  8. SIMVASTATIN [Concomitant]
  9. OXYBUTYNIN [Concomitant]
  10. AMARYL [Concomitant]
  11. PANTOPRAZOLE [Concomitant]

REACTIONS (3)
  - Death [Fatal]
  - Discomfort [Unknown]
  - Drug ineffective [Unknown]
